FAERS Safety Report 18446898 (Version 3)
Quarter: 2022Q3

REPORT INFORMATION
  Report Type: Spontaneous
  Country: US (occurrence: US)
  Receive Date: 20201030
  Receipt Date: 20220727
  Transmission Date: 20221027
  Serious: No
  Sender: FDA-Public Use
  Company Number: US-PFIZER INC-2020421793

PATIENT
  Age: 58 Year
  Sex: Female
  Weight: 81.19 kg

DRUGS (1)
  1. XELJANZ XR [Suspect]
     Active Substance: TOFACITINIB CITRATE
     Dosage: 11 MG, 2X/DAY

REACTIONS (7)
  - Headache [Unknown]
  - Off label use [Unknown]
  - Migraine [Unknown]
  - Pain in extremity [Unknown]
  - Skin disorder [Unknown]
  - General physical health deterioration [Unknown]
  - Pain [Unknown]
